FAERS Safety Report 5730712-9 (Version None)
Quarter: 2008Q2

REPORT INFORMATION
  Report Type: 
  Country: None (occurrence: None)
  Receive Date: 20080507
  Receipt Date: 20080425
  Transmission Date: 20081010
  Serious: Yes (Hospitalization, Disabling, Other)
  Sender: FDA-Public Use
  Company Number: US-PFIZER INC-2007002553

PATIENT
  Sex: Female
  Weight: 73 kg

DRUGS (1)
  1. BEXTRA [Suspect]
     Indication: ARTHRITIS

REACTIONS (5)
  - ANXIETY [None]
  - DEPRESSION [None]
  - QUADRIPLEGIA [None]
  - SPINAL CORD INJURY [None]
  - STEVENS-JOHNSON SYNDROME [None]
